FAERS Safety Report 23130021 (Version 2)
Quarter: 2023Q4

REPORT INFORMATION
  Report Type: Report from Study
  Country: MX (occurrence: None)
  Receive Date: 20231031
  Receipt Date: 20231102
  Transmission Date: 20240109
  Serious: Yes (Death, Hospitalization)
  Sender: FDA-Public Use
  Company Number: MX-ROCHE-3447481

PATIENT
  Age: 53 Year
  Sex: Female
  Weight: 63.2 kg

DRUGS (9)
  1. GIREDESTRANT [Suspect]
     Active Substance: GIREDESTRANT
     Indication: Breast cancer metastatic
     Dosage: ON 24/OCT/2023, SHE RECEIVED MOST RECENT DOSE (30 MG) OF GIREDESTRANT PRIOT TO AE
     Route: 048
     Dates: start: 20231004
  2. PERTUZUMAB\TRASTUZUMAB [Suspect]
     Active Substance: PERTUZUMAB\TRASTUZUMAB
     Indication: Breast cancer metastatic
     Dosage: DOSE : 1200 MG PERTUZUMAB, 600 MG TRASTUZUMAB?ON 04/OCT/2023, SHE RECEIVED MOST RECENT DOSE (600/600
     Route: 058
     Dates: start: 20230628
  3. PACLITAXEL [Suspect]
     Active Substance: PACLITAXEL
     Indication: Breast cancer metastatic
     Route: 042
     Dates: start: 20230628
  4. PACLITAXEL [Suspect]
     Active Substance: PACLITAXEL
     Dosage: DATE OF MOST RECENT DOSE OF STUDY DRUG PRIOR TO AE + SAE: 27/SEP/2023
     Route: 042
  5. ONDANSETRON [Concomitant]
     Active Substance: ONDANSETRON
     Route: 048
     Dates: start: 20230712
  6. OLANZAPINE [Concomitant]
     Active Substance: OLANZAPINE
     Indication: Nausea
     Route: 048
     Dates: start: 20230718
  7. BENZONATATE [Concomitant]
     Active Substance: BENZONATATE
     Indication: Cough
     Route: 048
     Dates: start: 20230822, end: 20230927
  8. DIHEXAZINE [Concomitant]
     Indication: Decreased appetite
     Route: 048
     Dates: start: 20230823
  9. CARBAMAZEPINE [Concomitant]
     Active Substance: CARBAMAZEPINE
     Indication: Paraesthesia
     Route: 048
     Dates: start: 20230913

REACTIONS (2)
  - Urinary tract infection [Fatal]
  - Septic shock [Fatal]

NARRATIVE: CASE EVENT DATE: 20231025
